FAERS Safety Report 8928031 (Version 1)
Quarter: 2012Q4

REPORT INFORMATION
  Report Type: Spontaneous
  Country: US (occurrence: None)
  Receive Date: 20121126
  Receipt Date: 20121126
  Transmission Date: 20130627
  Serious: Yes (Other)
  Sender: FDA-Public Use
  Company Number: None

PATIENT
  Age: 55 Year
  Sex: Female

DRUGS (1)
  1. DAKIN^S SOLUTION 0.25% CENTURY PHARMACEUTICALS [Suspect]
     Indication: INFECTION PROPHYLAXIS
     Dosage: varies once daily
     Route: 061
     Dates: start: 20060101, end: 20121117

REACTIONS (2)
  - Product quality issue [None]
  - Product formulation issue [None]
